FAERS Safety Report 19352213 (Version 1)
Quarter: 2021Q2

REPORT INFORMATION
  Report Type: Spontaneous
  Country: IL (occurrence: IL)
  Receive Date: 20210601
  Receipt Date: 20210601
  Transmission Date: 20210717
  Serious: Yes (Other)
  Sender: FDA-Public Use
  Company Number: IL-PFIZER INC-2021574193

PATIENT
  Age: 7 Decade
  Sex: Female

DRUGS (1)
  1. LORVIQUA [Suspect]
     Active Substance: LORLATINIB
     Indication: LUNG NEOPLASM MALIGNANT
     Dosage: 100 MG, 1X/DAY
     Dates: start: 202101

REACTIONS (2)
  - Neoplasm progression [Unknown]
  - Hypothyroidism [Unknown]

NARRATIVE: CASE EVENT DATE: 202102
